FAERS Safety Report 5287993-8 (Version None)
Quarter: 2007Q2

REPORT INFORMATION
  Report Type: 
  Country: None (occurrence: None)
  Receive Date: 20070405
  Receipt Date: 20070328
  Transmission Date: 20071010
  Serious: Yes (Hospitalization, Other)
  Sender: FDA-Public Use
  Company Number: DE-JNJFOC-20070301658

PATIENT
  Sex: Male
  Weight: 29.6 kg

DRUGS (11)
  1. CONCERTA [Suspect]
     Indication: ATTENTION DEFICIT/HYPERACTIVITY DISORDER
     Route: 048
  2. KREON [Concomitant]
     Route: 048
  3. VITAMIN A [Concomitant]
     Route: 048
  4. VITAMIN E [Concomitant]
     Route: 048
  5. VITAMIN K [Concomitant]
     Route: 048
  6. URSO FALK [Concomitant]
     Route: 048
  7. CALCIUM [Concomitant]
     Route: 048
  8. OMEPRAZOLE [Concomitant]
     Route: 050
  9. LAXOFALK [Concomitant]
     Route: 048
  10. IPRATROPIUMBEROMIDE [Concomitant]
     Route: 050
  11. ALBUTEROL [Concomitant]
     Route: 055

REACTIONS (2)
  - ILEUS [None]
  - WEIGHT DECREASED [None]
